FAERS Safety Report 12336170 (Version 7)
Quarter: 2020Q2

REPORT INFORMATION
  Report Type: Spontaneous
  Country: US (occurrence: US)
  Receive Date: 20160505
  Receipt Date: 20200428
  Transmission Date: 20200713
  Serious: No
  Sender: FDA-Public Use
  Company Number: US-PFIZER INC-2016236537

PATIENT
  Age: 78 Year
  Sex: Female
  Weight: 110 kg

DRUGS (23)
  1. KLOR-CON M20 [Concomitant]
     Active Substance: POTASSIUM CHLORIDE
     Dosage: 20 MEQ, 1X/DAY
     Route: 048
     Dates: start: 20141006
  2. PENLAC [Concomitant]
     Active Substance: CICLOPIROX
     Dosage: 8 %, 2X/DAY
     Dates: start: 20151022
  3. AMBIEN [Concomitant]
     Active Substance: ZOLPIDEM TARTRATE
     Indication: ASTHENIA
     Dosage: 10 MG, AS NEEDED (1 TABLET QHS PRN SLEEP)
     Dates: start: 20160419
  4. LASIX [Concomitant]
     Active Substance: FUROSEMIDE
     Indication: SWELLING
     Dosage: 20 MG, 1X/DAY
     Route: 048
     Dates: start: 20151022
  5. ESTRACE [Concomitant]
     Active Substance: ESTRADIOL
     Dosage: 2X/WEEK
     Route: 067
  6. CELEBREX [Suspect]
     Active Substance: CELECOXIB
     Indication: JOINT STIFFNESS
  7. AMBIEN [Concomitant]
     Active Substance: ZOLPIDEM TARTRATE
     Indication: SLEEP DISORDER
     Dosage: 10 MG, 1X/DAY
     Route: 048
     Dates: start: 20150728
  8. AMBIEN [Concomitant]
     Active Substance: ZOLPIDEM TARTRATE
     Dosage: UNK, AS NEEDED (ONLY IF NEEDED 1/2 PILL)
     Dates: start: 2015
  9. SYNTHROID [Concomitant]
     Active Substance: LEVOTHYROXINE SODIUM
     Dosage: 88 UG, DAILY
     Dates: start: 20161111
  10. AMIODARONE HCL [Concomitant]
     Active Substance: AMIODARONE HYDROCHLORIDE
     Dosage: 100 MG, DAILY
     Route: 048
     Dates: start: 20151022
  11. CELEBREX [Suspect]
     Active Substance: CELECOXIB
     Indication: SPINAL OSTEOARTHRITIS
  12. SYNTHROID [Concomitant]
     Active Substance: LEVOTHYROXINE SODIUM
     Dosage: UNK
     Dates: start: 2001
  13. RESTORIL [Concomitant]
     Active Substance: TEMAZEPAM
     Dosage: 7.5 MG, 1X/DAY
     Route: 048
     Dates: start: 20151022
  14. ASPIRIN. [Concomitant]
     Active Substance: ASPIRIN
     Dosage: 81 MG, 1X/DAY
  15. CELEBREX [Suspect]
     Active Substance: CELECOXIB
     Indication: BACK PAIN
     Dosage: 200 MG, DAILY (EVERY MORNING)
     Route: 048
     Dates: start: 20151022
  16. CELEBREX [Suspect]
     Active Substance: CELECOXIB
     Indication: BACK DISORDER
  17. LASIX [Concomitant]
     Active Substance: FUROSEMIDE
     Indication: OEDEMA
     Dosage: UNK, AS NEEDED (WHEN NEEDED TWICE WEEKLY)
  18. CELEBREX [Suspect]
     Active Substance: CELECOXIB
     Indication: PAIN
     Dosage: 200 MG, 1X/DAY
  19. ATIVAN [Concomitant]
     Active Substance: LORAZEPAM
     Indication: ANXIETY
     Dosage: AS NEEDED
     Dates: start: 20161019, end: 2018
  20. CELEBREX [Suspect]
     Active Substance: CELECOXIB
     Indication: ARTHRITIS
     Dosage: 200 MG, DAILY (EVERY MORNING)
     Route: 048
     Dates: start: 20161115
  21. SYNTHROID [Concomitant]
     Active Substance: LEVOTHYROXINE SODIUM
     Dosage: 88 UG, 1X/DAY
     Route: 048
     Dates: start: 20150826
  22. CYANOCOBALAMIN. [Concomitant]
     Active Substance: CYANOCOBALAMIN
     Dosage: 1000 UG/ML, MONTHLY
     Route: 051
     Dates: start: 20141013
  23. TRAMADOL HCL [Concomitant]
     Active Substance: TRAMADOL HYDROCHLORIDE
     Dosage: 50 MG, AS NEEDED (WHEN NEEDED 1 A WEEK)
     Route: 048
     Dates: start: 20151022

REACTIONS (13)
  - Peripheral swelling [Recovered/Resolved]
  - Pain [Unknown]
  - Oedema [Recovered/Resolved]
  - Skin lesion [Recovered/Resolved]
  - Fatigue [Not Recovered/Not Resolved]
  - Arthralgia [Not Recovered/Not Resolved]
  - Paraesthesia [Unknown]
  - Gait inability [Not Recovered/Not Resolved]
  - Joint stiffness [Unknown]
  - Feeling abnormal [Not Recovered/Not Resolved]
  - Burning sensation [Recovered/Resolved]
  - Weight increased [Not Recovered/Not Resolved]
  - Limb discomfort [Not Recovered/Not Resolved]
